FAERS Safety Report 14577251 (Version 1)
Quarter: 2018Q1

REPORT INFORMATION
  Report Type: Spontaneous
  Country: US (occurrence: US)
  Receive Date: 20180227
  Receipt Date: 20180227
  Transmission Date: 20180509
  Serious: Yes (Hospitalization, Other)
  Sender: FDA-Public Use
  Company Number: US-009507513-1802USA010567

PATIENT
  Age: 74 Year
  Sex: Female
  Weight: 95.24 kg

DRUGS (2)
  1. KEYTRUDA [Suspect]
     Active Substance: PEMBROLIZUMAB
     Dosage: 200 MG, ONCE
     Route: 042
     Dates: start: 20171129, end: 20171129
  2. MORPHINE [Concomitant]
     Active Substance: MORPHINE
     Dosage: 10MG/5ML 1-2ML Q3-4H
     Route: 048
     Dates: start: 20171006

REACTIONS (4)
  - Intestinal obstruction [Unknown]
  - Constipation [Unknown]
  - Malignant neoplasm progression [Unknown]
  - Hemiparesis [Unknown]

NARRATIVE: CASE EVENT DATE: 20171213
